FAERS Safety Report 7275955-0 (Version None)
Quarter: 2011Q1

REPORT INFORMATION
  Report Type: 
  Country: None (occurrence: None)
  Receive Date: 20110204
  Receipt Date: 20110201
  Transmission Date: 20110831
  Serious: Yes (Death)
  Sender: FDA-Public Use
  Company Number: A0911163A

PATIENT
  Age: 64 Year
  Sex: Male

DRUGS (6)
  1. ADVAIR [Suspect]
     Indication: CHRONIC OBSTRUCTIVE PULMONARY DISEASE
     Dosage: 1PUFF TWICE PER DAY
     Route: 055
     Dates: start: 20070101
  2. SINGULAIR [Concomitant]
  3. ASPIRIN [Concomitant]
  4. OXYGEN [Concomitant]
  5. LANTUS [Concomitant]
  6. HUMALOG [Concomitant]

REACTIONS (2)
  - DEATH [None]
  - HOSPICE CARE [None]
